FAERS Safety Report 5566230-0 (Version None)
Quarter: 2007Q4

REPORT INFORMATION
  Report Type: 
  Country: None (occurrence: None)
  Receive Date: 20071219
  Receipt Date: 20071204
  Transmission Date: 20080405
  Serious: Yes (Hospitalization, Other)
  Sender: FDA-Public Use
  Company Number: GR-BAYER-200718172GPV

PATIENT
  Age: 79 Year
  Sex: Male

DRUGS (5)
  1. NEXAVAR [Suspect]
     Indication: HEPATIC NEOPLASM MALIGNANT
     Dosage: TOTAL DAILY DOSE: 400 MG
     Route: 048
     Dates: start: 20071102, end: 20071104
  2. URSO FALK [Concomitant]
     Route: 048
  3. INDERAL [Concomitant]
     Route: 048
  4. ACTONEL [Concomitant]
     Route: 048
  5. SALOSPIR [Concomitant]
     Route: 048

REACTIONS (4)
  - COMA [None]
  - CONFUSIONAL STATE [None]
  - FATIGUE [None]
  - GAIT DISTURBANCE [None]
